FAERS Safety Report 12175712 (Version 2)
Quarter: 2016Q1

REPORT INFORMATION
  Report Type: Spontaneous
  Country: CH (occurrence: CH)
  Receive Date: 20160314
  Receipt Date: 20160316
  Transmission Date: 20160526
  Serious: Yes (Other)
  Sender: FDA-Public Use
  Company Number: CH-PFIZER INC-2016116959

PATIENT
  Age: 85 Year
  Sex: Male
  Weight: 55 kg

DRUGS (5)
  1. BELOC /00030002/ [Concomitant]
     Indication: PALPITATIONS
     Dosage: 50 MG, 1X
     Route: 048
  2. XALATAN [Suspect]
     Active Substance: LATANOPROST
     Indication: GLAUCOMA
     Dosage: 1X/DAY IN THE EVENING
     Dates: start: 20050601
  3. NEXIUM [Concomitant]
     Active Substance: ESOMEPRAZOLE MAGNESIUM
     Indication: ANTACID THERAPY
     Dosage: 20 MG, 1X
     Route: 048
  4. XALATAN [Suspect]
     Active Substance: LATANOPROST
     Dosage: UNK
  5. VOTUM /01635402/ [Concomitant]
     Active Substance: OLMESARTAN MEDOXOMIL
     Indication: HYPERTENSION
     Dosage: 10 MG, 1X
     Route: 048

REACTIONS (6)
  - Visual impairment [Unknown]
  - Condition aggravated [Unknown]
  - Eyelid margin crusting [Recovering/Resolving]
  - Product quality issue [Unknown]
  - Visual acuity reduced [Unknown]
  - Vision blurred [Unknown]

NARRATIVE: CASE EVENT DATE: 2015
